FAERS Safety Report 20524635 (Version 1)
Quarter: 2022Q1

REPORT INFORMATION
  Report Type: Spontaneous
  Country: JP (occurrence: JP)
  Receive Date: 20220228
  Receipt Date: 20220228
  Transmission Date: 20220423
  Serious: Yes (Hospitalization, Other)
  Sender: FDA-Public Use
  Company Number: JP-WOCKHARDT BIO AG-2022WBA000026

PATIENT
  Age: 55 Year
  Sex: Female

DRUGS (1)
  1. LITHIUM HYDROXIDE [Suspect]
     Active Substance: LITHIUM HYDROXIDE
     Indication: Bipolar disorder
     Dosage: UNK
     Route: 065

REACTIONS (3)
  - Hyperglycaemic hyperosmolar nonketotic syndrome [Recovered/Resolved]
  - Hypovolaemic shock [Recovered/Resolved]
  - Nephrogenic diabetes insipidus [Recovered/Resolved]
